FAERS Safety Report 4521716-2 (Version None)
Quarter: 2004Q4

REPORT INFORMATION
  Report Type: 
  Country: None (occurrence: None)
  Receive Date: 20041209
  Receipt Date: 20041116
  Transmission Date: 20050328
  Serious: Yes (Death, Other)
  Sender: FDA-Public Use
  Company Number: AU-ABBOTT-04P-008-0280766-00

PATIENT
  Sex: Female

DRUGS (10)
  1. VALPROATE SODIUM [Suspect]
     Indication: PROPHYLAXIS
     Route: 048
     Dates: start: 20040229, end: 20040510
  2. VALPROATE SODIUM [Suspect]
     Indication: EPILEPSY
  3. CARBIMAZOLE [Suspect]
     Indication: HYPERTHYROIDISM
     Route: 048
     Dates: start: 20040301, end: 20040510
  4. AMIODARONE HYDROCHLORIDE [Suspect]
     Indication: ARRHYTHMIA
     Route: 048
     Dates: start: 20040318, end: 20040510
  5. AMIODARONE HYDROCHLORIDE [Suspect]
     Indication: ATRIAL FIBRILLATION
  6. WARFARIN SODIUM [Suspect]
     Indication: ARRHYTHMIA
     Route: 048
     Dates: start: 20040325, end: 20040510
  7. WARFARIN SODIUM [Suspect]
     Indication: ATRIAL FIBRILLATION
  8. OMEPRAZOLE [Suspect]
     Indication: OESOPHAGEAL DISORDER
     Dates: end: 20040510
  9. PHENYTOIN SODIUM [Suspect]
     Indication: EPILEPSY
     Dates: start: 20040301, end: 20040510
  10. UNKNOWN [Concomitant]

REACTIONS (12)
  - BLINDNESS [None]
  - CARDIOMEGALY [None]
  - COMA HEPATIC [None]
  - DELIRIUM [None]
  - DYSPNOEA [None]
  - EXOPHTHALMOS [None]
  - HEPATIC FAILURE [None]
  - HEPATORENAL SYNDROME [None]
  - HYPERAMMONAEMIA [None]
  - HYPERTHYROIDISM [None]
  - HYPOTENSION [None]
  - OEDEMA PERIPHERAL [None]
